FAERS Safety Report 10694969 (Version 1)
Quarter: 2015Q1

REPORT INFORMATION
  Report Type: Spontaneous
  Country: US (occurrence: None)
  Receive Date: 20150106
  Receipt Date: 20150106
  Transmission Date: 20150721
  Serious: Yes (Disabling, Other)
  Sender: FDA-Public Use
  Company Number: None

PATIENT
  Age: 32 Year
  Sex: Male
  Weight: 58.97 kg

DRUGS (1)
  1. LEVOFLOXACIN. [Suspect]
     Active Substance: LEVOFLOXACIN
     Indication: SINUSITIS
     Route: 048
     Dates: start: 20141202, end: 20141203

REACTIONS (6)
  - Pyrexia [None]
  - White blood cell count decreased [None]
  - Chills [None]
  - Asthenia [None]
  - Blood potassium decreased [None]
  - Rash [None]

NARRATIVE: CASE EVENT DATE: 20141205
